FAERS Safety Report 4351358-3 (Version None)
Quarter: 2004Q2

REPORT INFORMATION
  Report Type: 
  Country: None (occurrence: None)
  Receive Date: 20040430
  Receipt Date: 20040430
  Transmission Date: 20050107
  Serious: Yes (Life-Threatening, Hospitalization)
  Sender: FDA-Public Use
  Company Number: None

PATIENT
  Age: 39 Year
  Sex: Male
  Weight: 83 kg

DRUGS (3)
  1. TENOFOVIR [Suspect]
     Indication: URTICARIA
  2. DIDEOXYINOSINE [Suspect]
     Indication: URTICARIA
  3. DYT [Suspect]
     Indication: URTICARIA

REACTIONS (6)
  - ASTHENIA [None]
  - DIARRHOEA [None]
  - HYPERKALAEMIA [None]
  - METABOLIC ACIDOSIS [None]
  - NAUSEA [None]
  - VOMITING [None]
